FAERS Safety Report 19252565 (Version 3)
Quarter: 2021Q2

REPORT INFORMATION
  Report Type: Spontaneous
  Country: US (occurrence: US)
  Receive Date: 20210512
  Receipt Date: 20210607
  Transmission Date: 20210717
  Serious: No
  Sender: FDA-Public Use
  Company Number: US-LUPIN PHARMACEUTICALS INC.-2021-06734

PATIENT
  Sex: Female
  Weight: 70.76 kg

DRUGS (3)
  1. TESTOSTERONE GEL 1.62% [Suspect]
     Active Substance: TESTOSTERONE
     Indication: HORMONE THERAPY
     Dosage: UNK (APPLY DIME SIZE AMOUNT OR 1/4 PUMP TO BACK CALF EVERY ONCE MORNING)
     Route: 065
     Dates: start: 201908
  2. PROGESTERONE. [Concomitant]
     Active Substance: PROGESTERONE
     Indication: PRODUCT USED FOR UNKNOWN INDICATION
     Dosage: 100 MILLIGRAM, QD
     Route: 065
     Dates: start: 201908
  3. ESTROGEN [Concomitant]
     Active Substance: ESTROGENS
     Indication: PRODUCT USED FOR UNKNOWN INDICATION
     Dosage: 0.837 MILLIGRAM, QD
     Route: 065
     Dates: start: 201908

REACTIONS (3)
  - Suspected product quality issue [Unknown]
  - No adverse event [Unknown]
  - Incorrect dose administered [Unknown]
